FAERS Safety Report 12715200 (Version 2)
Quarter: 2016Q3

REPORT INFORMATION
  Report Type: Spontaneous
  Country: US (occurrence: US)
  Receive Date: 20160905
  Receipt Date: 20160928
  Transmission Date: 20161109
  Serious: No
  Sender: FDA-Public Use
  Company Number: US-JNJFOC-20160210107

PATIENT
  Age: 60 Year
  Sex: Male
  Weight: 80.29 kg

DRUGS (14)
  1. CHOLECALCIFEROL [Concomitant]
     Active Substance: CHOLECALCIFEROL
     Indication: PRODUCT USED FOR UNKNOWN INDICATION
  2. DOCUSATE SODIUM. [Concomitant]
     Active Substance: DOCUSATE SODIUM
     Indication: ABNORMAL FAECES
  3. LORATADINE. [Concomitant]
     Active Substance: LORATADINE
     Indication: MULTIPLE ALLERGIES
  4. LANSOPRAZOLE. [Concomitant]
     Active Substance: LANSOPRAZOLE
     Indication: GASTROOESOPHAGEAL REFLUX DISEASE
  5. ATORVASTATIN CALCIUM. [Concomitant]
     Active Substance: ATORVASTATIN CALCIUM
     Indication: BLOOD CHOLESTEROL INCREASED
  6. GABAPENTIN. [Concomitant]
     Active Substance: GABAPENTIN
     Indication: RADICULITIS BRACHIAL
  7. MAGNESIUM OXIDE. [Concomitant]
     Active Substance: MAGNESIUM OXIDE
     Indication: NEPHROLITHIASIS
  8. MELATONIN [Concomitant]
     Active Substance: MELATONIN
     Indication: SLEEP DISORDER THERAPY
  9. LEVAQUIN [Suspect]
     Active Substance: LEVOFLOXACIN
     Indication: SURGERY
     Route: 042
     Dates: start: 20121001, end: 20121001
  10. PRIMIDONE. [Concomitant]
     Active Substance: PRIMIDONE
     Indication: TREMOR
  11. HYDROCHLOROTHIAZIDE. [Concomitant]
     Active Substance: HYDROCHLOROTHIAZIDE
     Indication: PROSTATOMEGALY
  12. TADALAFIL [Concomitant]
     Active Substance: TADALAFIL
     Indication: ERECTILE DYSFUNCTION
  13. TAMSULOSIN HCL [Concomitant]
     Active Substance: TAMSULOSIN
     Indication: DIURETIC THERAPY
  14. OXYBUTYNIN CHLORIDE. [Concomitant]
     Active Substance: OXYBUTYNIN CHLORIDE
     Indication: PROSTATOMEGALY

REACTIONS (4)
  - Paraesthesia [Unknown]
  - Neuropathy peripheral [Unknown]
  - Product use issue [Unknown]
  - Off label use [Unknown]

NARRATIVE: CASE EVENT DATE: 20121001
